FAERS Safety Report 11499112 (Version 2)
Quarter: 2017Q1

REPORT INFORMATION
  Report Type: Spontaneous
  Country: US (occurrence: US)
  Receive Date: 20150913
  Receipt Date: 20170113
  Transmission Date: 20170428
  Serious: Yes (Other)
  Sender: FDA-Public Use
  Company Number: US-ELI_LILLY_AND_COMPANY-US201509001370

PATIENT
  Sex: Female

DRUGS (2)
  1. CYMBALTA [Suspect]
     Active Substance: DULOXETINE HYDROCHLORIDE
     Indication: HEADACHE
     Dosage: UNK, UNKNOWN
     Route: 065
     Dates: start: 20130905
  2. CYMBALTA [Suspect]
     Active Substance: DULOXETINE HYDROCHLORIDE
     Dosage: UNK, UNKNOWN
     Route: 065
     Dates: end: 20150402

REACTIONS (16)
  - Mood altered [Unknown]
  - Disturbance in attention [Unknown]
  - Depressed mood [Unknown]
  - Off label use [Unknown]
  - Nausea [Unknown]
  - Peripheral swelling [Unknown]
  - Tremor [Unknown]
  - Sleep disorder [Unknown]
  - Anger [Unknown]
  - Pain in extremity [Unknown]
  - Mood swings [Unknown]
  - Anxiety [Unknown]
  - Asthenia [Unknown]
  - Paraesthesia [Unknown]
  - Nightmare [Unknown]
  - Drug withdrawal syndrome [Unknown]
